FAERS Safety Report 16353309 (Version 3)
Quarter: 2019Q3

REPORT INFORMATION
  Report Type: Spontaneous
  Country: JP (occurrence: JP)
  Receive Date: 20190524
  Receipt Date: 20190719
  Transmission Date: 20191004
  Serious: Yes (Other)
  Sender: FDA-Public Use
  Company Number: JP-ELI_LILLY_AND_COMPANY-JP201905007584

PATIENT
  Age: 65 Year
  Sex: Male

DRUGS (8)
  1. MAGNESIUM OXIDE. [Concomitant]
     Active Substance: MAGNESIUM OXIDE
  2. GASMOTIN [Concomitant]
     Active Substance: MOSAPRIDE CITRATE
  3. AMARYL [Concomitant]
     Active Substance: GLIMEPIRIDE
     Indication: DIABETES MELLITUS
     Dosage: UNK
  4. ILUAMIX [Concomitant]
  5. FORXIGA [Concomitant]
     Active Substance: DAPAGLIFLOZIN
     Indication: DIABETES MELLITUS
  6. PICOSULFAT [Concomitant]
  7. METGLUCO [Concomitant]
     Active Substance: METFORMIN HYDROCHLORIDE
     Indication: DIABETES MELLITUS
     Dosage: UNK
  8. TRULICITY [Suspect]
     Active Substance: DULAGLUTIDE
     Indication: DIABETES MELLITUS
     Dosage: 0.75 MG, WEEKLY (1/W)
     Route: 058
     Dates: start: 20190321

REACTIONS (3)
  - Colon cancer stage IV [Unknown]
  - Pancreatic carcinoma [Unknown]
  - Metastases to lung [Unknown]

NARRATIVE: CASE EVENT DATE: 20190429
